FAERS Safety Report 11465983 (Version 2)
Quarter: 2015Q4

REPORT INFORMATION
  Report Type: Report from Study
  Country: JP (occurrence: JP)
  Receive Date: 20150907
  Receipt Date: 20151211
  Transmission Date: 20160304
  Serious: Yes (Other)
  Sender: FDA-Public Use
  Company Number: JP-AMGEN-JPNCT2013054507

PATIENT
  Age: 44 Year
  Sex: Female
  Weight: 54 kg

DRUGS (13)
  1. FERROMIA [Concomitant]
     Active Substance: FERROUS CITRATE
     Dosage: 100 MG, UNK
     Route: 048
     Dates: start: 20120802, end: 20120919
  2. CINAL [Concomitant]
     Active Substance: ASCORBIC ACID\CALCIUM PANTOTHENATE
     Dosage: 3000 MG, UNK
     Route: 048
     Dates: start: 20120827, end: 20121003
  3. ITRIZOLE [Concomitant]
     Active Substance: ITRACONAZOLE
     Indication: PROPHYLAXIS
     Dosage: UNK
     Route: 048
  4. TRANSAMIN [Concomitant]
     Active Substance: TRANEXAMIC ACID
     Dosage: 750 MG, UNK
     Route: 048
     Dates: start: 20120802, end: 20121003
  5. PARIET [Concomitant]
     Active Substance: RABEPRAZOLE SODIUM
     Indication: PROPHYLAXIS
     Dosage: UNK
     Route: 048
  6. ADONA [Concomitant]
     Active Substance: CARBAZOCHROME SODIUM SULFONATE
     Dosage: 90 MG, UNK
     Route: 048
     Dates: start: 20120607, end: 20121003
  7. ROMIPLOSTIM - KHK [Suspect]
     Active Substance: ROMIPLOSTIM
     Indication: IMMUNE THROMBOCYTOPENIC PURPURA
     Dosage: 1 MUG/KG, QD
     Route: 058
     Dates: start: 20120816
  8. PREDNISOLONE. [Suspect]
     Active Substance: PREDNISOLONE
     Indication: PRODUCT USED FOR UNKNOWN INDICATION
     Dosage: 2.5 MG, QD
     Route: 048
     Dates: start: 20120802
  9. BAKTAR [Concomitant]
     Active Substance: SULFAMETHOXAZOLE\TRIMETHOPRIM
     Indication: PROPHYLAXIS
     Dosage: UNK
     Route: 048
  10. DECADRON [Concomitant]
     Active Substance: DEXAMETHASONE
     Dosage: 40 MG, UNK
     Route: 065
     Dates: start: 20120808, end: 20120811
  11. FOSAMAC [Concomitant]
     Active Substance: ALENDRONATE SODIUM
     Indication: PROPHYLAXIS
     Dosage: UNK
     Route: 048
  12. ASCORBIC ACID. [Concomitant]
     Active Substance: ASCORBIC ACID
     Dosage: 2000 MG, UNK
     Route: 048
     Dates: start: 20120607, end: 20120810
  13. OLMETEC [Concomitant]
     Active Substance: OLMESARTAN MEDOXOMIL
     Indication: HYPERTENSION
     Dosage: UNK
     Route: 048

REACTIONS (11)
  - Hypertension [Recovering/Resolving]
  - Urticaria [Recovered/Resolved]
  - Purpura [Recovered/Resolved]
  - Epistaxis [Recovered/Resolved]
  - White blood cell count decreased [Recovered/Resolved]
  - Epistaxis [Recovered/Resolved]
  - Epistaxis [Recovered/Resolved]
  - Dizziness [Recovering/Resolving]
  - Injection site haematoma [Recovering/Resolving]
  - Petechiae [Recovering/Resolving]
  - Arthralgia [Recovering/Resolving]

NARRATIVE: CASE EVENT DATE: 20120820
